FAERS Safety Report 6259073-6 (Version None)
Quarter: 2009Q3

REPORT INFORMATION
  Report Type: 
  Country: None (occurrence: None)
  Receive Date: 20090707
  Receipt Date: 20090624
  Transmission Date: 20100115
  Serious: Yes (Other)
  Sender: FDA-Public Use
  Company Number: US-ELI_LILLY_AND_COMPANY-US200906006236

PATIENT
  Sex: Female

DRUGS (1)
  1. HUMATROPE [Suspect]
     Indication: HYPOPITUITARISM
     Dosage: 0.3 MG, DAILY (1/D)
     Dates: end: 20080401

REACTIONS (3)
  - DRUG PRESCRIBING ERROR [None]
  - HYPOPHYSITIS [None]
  - PITUITARY TUMOUR [None]
